FAERS Safety Report 15282767 (Version 1)
Quarter: 2018Q3

REPORT INFORMATION
  Report Type: Spontaneous
  Country: HR (occurrence: HR)
  Receive Date: 20180816
  Receipt Date: 20180816
  Transmission Date: 20181010
  Serious: Yes (Death, Other)
  Sender: FDA-Public Use
  Company Number: HR-MERCK KGAA-2053793

PATIENT
  Age: 73 Year
  Sex: Female

DRUGS (7)
  1. IMBRUVICA [Suspect]
     Active Substance: IBRUTINIB
     Route: 048
     Dates: start: 20150602
  2. NOVOTHYROX [Suspect]
     Active Substance: LEVOTHYROXINE SODIUM
     Indication: THYROIDECTOMY
     Route: 048
     Dates: start: 2010
  3. HUMULIN N [Concomitant]
     Active Substance: INSULIN HUMAN
  4. TERTENSIF [Concomitant]
     Active Substance: INDAPAMIDE
     Route: 048
     Dates: start: 2012
  5. LOSARTIC [Suspect]
     Active Substance: LOSARTAN POTASSIUM
     Route: 048
     Dates: start: 2012
  6. IMBRUVICA [Suspect]
     Active Substance: IBRUTINIB
     Route: 048
     Dates: start: 20160414
  7. IMBRUVICA [Suspect]
     Active Substance: IBRUTINIB
     Route: 048

REACTIONS (3)
  - Pneumonia [Fatal]
  - Myocardial infarction [Fatal]
  - Atrial fibrillation [Fatal]

NARRATIVE: CASE EVENT DATE: 201604
